FAERS Safety Report 9339013 (Version 1)
Quarter: 2013Q2

REPORT INFORMATION
  Report Type: Spontaneous
  Country: US (occurrence: None)
  Receive Date: 20130524
  Receipt Date: 20130524
  Transmission Date: 20140414
  Serious: Yes (Other)
  Sender: FDA-Public Use
  Company Number: 2013036144

PATIENT
  Age: 52 Year
  Sex: Female

DRUGS (1)
  1. HIZENTRA (IMMUNOGLOBULIN HUMAN NORMAL) [Suspect]
     Dates: end: 201212

REACTIONS (2)
  - Abdominal pain upper [None]
  - Helicobacter test positive [None]
